FAERS Safety Report 18882962 (Version 1)
Quarter: 2021Q1

REPORT INFORMATION
  Report Type: Spontaneous
  Country: US (occurrence: US)
  Receive Date: 20210211
  Receipt Date: 20210211
  Transmission Date: 20210420
  Serious: Yes (Other)
  Sender: FDA-Public Use
  Company Number: None

PATIENT
  Age: 79 Year
  Sex: Male
  Weight: 93 kg

DRUGS (1)
  1. GADOBUTROL. [Suspect]
     Active Substance: GADOBUTROL
     Dates: start: 20200925, end: 20200925

REACTIONS (9)
  - Pneumonia [None]
  - Chills [None]
  - Contrast media allergy [None]
  - Hypotension [None]
  - Hypertension [None]
  - Hypersensitivity [None]
  - Cardio-respiratory arrest [None]
  - Sepsis [None]
  - Hypoxia [None]

NARRATIVE: CASE EVENT DATE: 20200925
